FAERS Safety Report 10781561 (Version 1)
Quarter: 2015Q1

REPORT INFORMATION
  Report Type: Spontaneous
  Country: US (occurrence: None)
  Receive Date: 20150209
  Receipt Date: 20150209
  Transmission Date: 20150721
  Serious: No
  Sender: FDA-Public Use
  Company Number: None

PATIENT
  Age: 39 Year
  Sex: Female
  Weight: 131.54 kg

DRUGS (2)
  1. FUROSEMIDE 20 MG [Suspect]
     Active Substance: FUROSEMIDE
     Indication: ACUTE PULMONARY OEDEMA
     Route: 042
     Dates: start: 20150206, end: 20150206
  2. INTEGRILIN [Concomitant]
     Active Substance: EPTIFIBATIDE

REACTIONS (2)
  - Liquid product physical issue [None]
  - Product deposit [None]

NARRATIVE: CASE EVENT DATE: 20150206
